FAERS Safety Report 23354855 (Version 2)
Quarter: 2024Q1

REPORT INFORMATION
  Report Type: Spontaneous
  Country: VN (occurrence: VN)
  Receive Date: 20240101
  Receipt Date: 20240112
  Transmission Date: 20240410
  Serious: Yes (Death)
  Sender: FDA-Public Use
  Company Number: VN-002147023-NVSC2023VN274790

PATIENT
  Age: 40 Year
  Sex: Male

DRUGS (8)
  1. CYTARABINE [Suspect]
     Active Substance: CYTARABINE
     Indication: Non-Hodgkin^s lymphoma
     Dosage: 100 MG (DAY 8, CYCLE 1,3 AND CYCLE 2,4)
     Route: 029
  2. CYTARABINE [Suspect]
     Active Substance: CYTARABINE
     Dosage: 3000 MG/M2 (TWICE A DAY IN DAY  2 AND 3 OF CYCLE 2,4 AND CYCLE 6,8)
     Route: 065
  3. DOXORUBICIN [Suspect]
     Active Substance: DOXORUBICIN
     Indication: Non-Hodgkin^s lymphoma
     Dosage: 50 MG/M2 (DAY 4, CYCLE 1, 3 AND CYCLE 5, 7)
     Route: 065
  4. FILGRASTIM [Suspect]
     Active Substance: FILGRASTIM
     Dosage: 10 MG/KG (FROM DAY 4 UNTIL  WBC  RECOVERY,  CYCLE 2, 4 AND CYCLE 6,8)
     Route: 058
  5. FILGRASTIM [Suspect]
     Active Substance: FILGRASTIM
     Indication: Non-Hodgkin^s lymphoma
     Dosage: 10 MG/KG (FROM DAY 5 UNTIL WBC RECOVERY, CYCLE 1,3 AND CYCLE 5, 7)
     Route: 058
  6. METHOTREXATE [Suspect]
     Active Substance: METHOTREXATE
     Indication: Non-Hodgkin^s lymphoma
     Dosage: 12 MG (DAY 2, CYCLE 1,3 AND CYCLE 2,4)
     Route: 029
  7. METHOTREXATE [Suspect]
     Active Substance: METHOTREXATE
     Dosage: 200 MG/M2 (DAY 1, CYCLE 2,4 AND CYCLE 6,8)
     Route: 065
  8. METHOTREXATE [Suspect]
     Active Substance: METHOTREXATE
     Dosage: 800 MG/M2 (IN ABOUT 22 HOURS, DAY 1, CYCLE 2,4 AND CYCLE 6,8)
     Route: 065

REACTIONS (2)
  - Non-Hodgkin^s lymphoma [Fatal]
  - Malignant neoplasm progression [Fatal]
